FAERS Safety Report 10018670 (Version 2)
Quarter: 2014Q1

REPORT INFORMATION
  Report Type: Spontaneous
  Country: US (occurrence: US)
  Receive Date: 20140318
  Receipt Date: 20140318
  Transmission Date: 20141002
  Serious: No
  Sender: FDA-Public Use
  Company Number: US-GALDERMA-US13002402

PATIENT
  Age: 74 Year
  Sex: Male

DRUGS (4)
  1. VECTICAL (CALCITRIOL) OINTMENT 3 MCG/G [Suspect]
     Indication: PSORIASIS
     Route: 061
     Dates: start: 20130309
  2. HALOBETASOL OINTMENT [Concomitant]
     Indication: PSORIASIS
     Route: 061
     Dates: start: 2011
  3. DIAL BAR SOAP [Concomitant]
     Indication: THERAPEUTIC SKIN CARE TOPICAL
     Route: 061
  4. DERMATOX SKIN RENEWAL SPRAY [Concomitant]
     Route: 061

REACTIONS (1)
  - Drug ineffective [Not Recovered/Not Resolved]
